FAERS Safety Report 23704109 (Version 1)
Quarter: 2024Q2

REPORT INFORMATION
  Report Type: Report from Study
  Country: US (occurrence: US)
  Receive Date: 20240403
  Receipt Date: 20240403
  Transmission Date: 20240716
  Serious: Yes (Other)
  Sender: FDA-Public Use
  Company Number: US-ABBVIE-5700705

PATIENT
  Age: 44 Year
  Sex: Female

DRUGS (1)
  1. HUMIRA [Suspect]
     Active Substance: ADALIMUMAB
     Indication: Ankylosing spondylitis
     Route: 058
     Dates: start: 20190710

REACTIONS (6)
  - Hip surgery [Unknown]
  - Respiratory disorder [Not Recovered/Not Resolved]
  - Oxygen saturation abnormal [Unknown]
  - Dizziness [Unknown]
  - Oxygen saturation decreased [Unknown]
  - Hypopnoea [Unknown]

NARRATIVE: CASE EVENT DATE: 20230101
